FAERS Safety Report 24607170 (Version 1)
Quarter: 2024Q4

REPORT INFORMATION
  Report Type: Spontaneous
  Country: US (occurrence: None)
  Receive Date: 20241110
  Receipt Date: 20241110
  Transmission Date: 20250115
  Serious: Yes (unspecified)
  Sender: Public
  Company Number: None

PATIENT
  Age: 58 Year
  Sex: Male
  Weight: 76.5 kg

DRUGS (8)
  1. PAXLOVID [Suspect]
     Active Substance: NIRMATRELVIR\RITONAVIR
     Indication: Sinusitis
     Dosage: 3 TABLET(S) TWICE  DAY ORAL
     Route: 048
     Dates: start: 20240831, end: 20240904
  2. DEXAMETHASONE [Suspect]
     Active Substance: DEXAMETHASONE
     Indication: Sinus congestion
     Dosage: 1 TABLET ORAL ?
     Route: 048
     Dates: start: 20240831, end: 20241106
  3. LOSARTAN [Concomitant]
     Active Substance: LOSARTAN
  4. VITAMIN B [Concomitant]
     Active Substance: VITAMIN B
  5. c [Concomitant]
  6. D [Concomitant]
  7. TOCOPHEROL [Concomitant]
     Active Substance: TOCOPHEROL
  8. FISH OIL [Concomitant]
     Active Substance: FISH OIL

REACTIONS (8)
  - Blood pressure increased [None]
  - Fatigue [None]
  - Blood sodium decreased [None]
  - Insomnia [None]
  - Dizziness [None]
  - Dizziness [None]
  - Swelling face [None]
  - Drug interaction [None]

NARRATIVE: CASE EVENT DATE: 20240831
